FAERS Safety Report 4889361-7 (Version None)
Quarter: 2006Q1

REPORT INFORMATION
  Report Type: 
  Country: None (occurrence: None)
  Receive Date: 20060120
  Receipt Date: 20060110
  Transmission Date: 20060701
  Serious: Yes (Disabling, Other)
  Sender: FDA-Public Use
  Company Number: 200610212BCC

PATIENT
  Age: 19 Year
  Sex: Male

DRUGS (2)
  1. ALEVE [Suspect]
     Indication: SHOULDER PAIN
     Dosage: ORAL
     Route: 048
     Dates: start: 20050601, end: 20051201
  2. NAPROSYN [Suspect]
     Indication: ARTHRALGIA
     Dates: start: 20050101

REACTIONS (4)
  - ACTIVITIES OF DAILY LIVING IMPAIRED [None]
  - ARTHRITIS [None]
  - CONDITION AGGRAVATED [None]
  - REFUSAL OF TREATMENT BY PATIENT [None]
